FAERS Safety Report 6269102-1 (Version None)
Quarter: 2009Q3

REPORT INFORMATION
  Report Type: 
  Country: None (occurrence: None)
  Receive Date: 20090715
  Receipt Date: 20090707
  Transmission Date: 20100115
  Serious: No
  Sender: FDA-Public Use
  Company Number: US-EISAI INC.-E3810-02856-SPO-US

PATIENT
  Age: 36 Year
  Sex: Male
  Weight: 74 kg

DRUGS (1)
  1. ACIPHEX [Suspect]
     Route: 048
     Dates: start: 20090219, end: 20090519

REACTIONS (1)
  - LOSS OF CONSCIOUSNESS [None]
